FAERS Safety Report 19518808 (Version 3)
Quarter: 2024Q3

REPORT INFORMATION
  Report Type: Report from Study
  Country: IT (occurrence: IT)
  Receive Date: 20210712
  Receipt Date: 20240724
  Transmission Date: 20241017
  Serious: Yes (Other)
  Sender: ROCHE
  Company Number: IT-CELLTRION HEALTHCARE HUNGARY KFT-2019IT023833

PATIENT
  Age: 38 Year
  Sex: Female
  Weight: 60 kg

DRUGS (13)
  1. PERTUZUMAB [Suspect]
     Active Substance: PERTUZUMAB
     Indication: HER2 positive breast cancer
     Dosage: 420 MG, EVERY 3 WEEKS
     Route: 042
     Dates: start: 20190423
  2. TRASTUZUMAB [Suspect]
     Active Substance: TRASTUZUMAB
     Indication: HER2 positive breast cancer
     Dosage: 360 MG, EVERY 3 WEEKS
     Route: 041
     Dates: start: 20190423
  3. HERCEPTIN [Suspect]
     Active Substance: TRASTUZUMAB
     Indication: HER2 positive breast cancer
     Dosage: POWDER FOR CONCENTRATE FOR SOLUTION FOR INFUSION
     Route: 065
  4. LEUPROLIDE ACETATE [Suspect]
     Active Substance: ISOPROPYL ALCOHOL\LEUPROLIDE ACETATE
     Indication: HER2 positive breast cancer
     Dosage: 11.25 MG EVERY 4 WEEKS
     Route: 058
     Dates: start: 20191126
  5. LEUPROLIDE ACETATE [Suspect]
     Active Substance: ISOPROPYL ALCOHOL\LEUPROLIDE ACETATE
     Dosage: 3.75 MG EVERY 4 WEEKS; RECEIVED THE MOST RECENT DOSE ON 25/NOV/2019
     Route: 058
     Dates: start: 20190401
  6. PACLITAXEL [Suspect]
     Active Substance: PACLITAXEL
     Indication: HER2 positive breast cancer
     Dosage: 129.6 MG EVERY WEEK
     Route: 042
     Dates: start: 20190423
  7. CARBOPLATIN [Suspect]
     Active Substance: CARBOPLATIN
     Indication: HER2 positive breast cancer
     Dosage: 700 MG, EVERY 3 WEEKS
     Route: 042
     Dates: start: 20190423
  8. LOPERAMIDE HYDROCHLORIDE [Concomitant]
     Active Substance: LOPERAMIDE HYDROCHLORIDE
     Dosage: UNK
     Dates: start: 20190423
  9. DEXAMETHASONE [Concomitant]
     Active Substance: DEXAMETHASONE
     Dosage: UNK
     Dates: start: 20190423
  10. ALIZAPRIDE HYDROCHLORIDE [Concomitant]
     Active Substance: ALIZAPRIDE HYDROCHLORIDE
     Dosage: UNK
     Dates: start: 20190423
  11. RANITIDINE [Concomitant]
     Active Substance: RANITIDINE
     Dosage: UNK
     Dates: start: 20190423
  12. AKYNZEO [Concomitant]
     Dosage: UNK
     Dates: start: 20190423
  13. TRIMETON [Concomitant]
     Active Substance: CHLORPHENIRAMINE MALEATE
     Dosage: UNK
     Dates: start: 20190423

REACTIONS (2)
  - Alopecia [Recovered/Resolved]
  - Neutropenia [Recovered/Resolved]
